FAERS Safety Report 5352143-6 (Version None)
Quarter: 2007Q2

REPORT INFORMATION
  Report Type: 
  Country: None (occurrence: None)
  Receive Date: 20070611
  Receipt Date: 20070530
  Transmission Date: 20071010
  Serious: Yes (Hospitalization)
  Sender: FDA-Public Use
  Company Number: US-JNJFOC-20070600742

PATIENT
  Sex: Female
  Weight: 111.13 kg

DRUGS (6)
  1. TYLENOL [Suspect]
  2. TYLENOL [Suspect]
     Indication: PAIN
     Dosage: UP TO 6 GRAMS DAILY PRN
  3. SUBOXONE [Suspect]
     Route: 060
  4. SUBOXONE [Suspect]
     Indication: DRUG WITHDRAWAL SYNDROME
     Route: 060
  5. PROVENTIL-HFA [Concomitant]
  6. CYMBALTA [Concomitant]

REACTIONS (2)
  - ACUTE HEPATIC FAILURE [None]
  - INTENTIONAL OVERDOSE [None]
